FAERS Safety Report 13900410 (Version 2)
Quarter: 2017Q3

REPORT INFORMATION
  Report Type: Spontaneous
  Country: US (occurrence: US)
  Receive Date: 20170824
  Receipt Date: 20170905
  Transmission Date: 20171127
  Serious: No
  Sender: FDA-Public Use
  Company Number: US-PFIZER INC-2017364526

PATIENT
  Age: 85 Year
  Sex: Female
  Weight: 83 kg

DRUGS (3)
  1. GABAPENTIN. [Suspect]
     Active Substance: GABAPENTIN
     Indication: NEUROPATHY PERIPHERAL
     Dosage: UNK
  2. GABAPENTIN. [Suspect]
     Active Substance: GABAPENTIN
     Dosage: ^3 CAPSULES FOR BREAKFAST, LUNCH, AND SUPPER AND TAKE TWO 100MG CAPSULES AT NIGHT^
     Route: 048
     Dates: start: 2016
  3. GABAPENTIN. [Suspect]
     Active Substance: GABAPENTIN
     Dosage: ^TWO CAPSULES, IN THE MORNING, AT LUNCH, AND DINNER, AND ONE AT BEDTIME^
     Route: 048
     Dates: start: 2017

REACTIONS (5)
  - Condition aggravated [Unknown]
  - Tendonitis [Unknown]
  - Drug ineffective for unapproved indication [Unknown]
  - Feeling abnormal [Recovering/Resolving]
  - Intentional product use issue [Unknown]

NARRATIVE: CASE EVENT DATE: 2017
